FAERS Safety Report 4348562-7 (Version None)
Quarter: 2004Q2

REPORT INFORMATION
  Report Type: 
  Country: None (occurrence: None)
  Receive Date: 20040422
  Receipt Date: 20040406
  Transmission Date: 20050107
  Serious: Yes (Death)
  Sender: FDA-Public Use
  Company Number: JP_040402942

PATIENT
  Age: 20 Year
  Sex: Female
  Weight: 50 kg

DRUGS (1)
  1. ZYPREXA [Suspect]
     Indication: SCHIZOPHRENIA
     Dosage: 2.5 MG DAY
     Dates: start: 20040326

REACTIONS (1)
  - COMPLETED SUICIDE [None]
